FAERS Safety Report 6229747-1 (Version None)
Quarter: 2009Q2

REPORT INFORMATION
  Report Type: 
  Country: None (occurrence: None)
  Receive Date: 20090615
  Receipt Date: 20090604
  Transmission Date: 20091009
  Serious: Yes (Other)
  Sender: FDA-Public Use
  Company Number: PHHY2008FR13315

PATIENT
  Age: 42 Year
  Sex: Female

DRUGS (3)
  1. EXJADE [Suspect]
     Indication: SICKLE CELL ANAEMIA
     Dosage: 2 DF, QD
     Dates: end: 20080510
  2. METHOTREXATE [Suspect]
     Indication: RHEUMATOID ARTHRITIS
     Dosage: 10 MG, QW
     Dates: end: 20080401
  3. HYDREA [Suspect]
     Indication: RHEUMATOID ARTHRITIS
     Dosage: UNK
     Dates: end: 20080401

REACTIONS (2)
  - CAESAREAN SECTION [None]
  - DRUG EXPOSURE DURING PREGNANCY [None]
